FAERS Safety Report 6241134-9 (Version None)
Quarter: 2009Q2

REPORT INFORMATION
  Report Type: 
  Country: None (occurrence: None)
  Receive Date: 20090619
  Receipt Date: 20090619
  Transmission Date: 20091009
  Serious: No
  Sender: FDA-Public Use
  Company Number: None

PATIENT
  Sex: Female
  Weight: 61.2356 kg

DRUGS (2)
  1. ZYCAM NASAL SWABS MATRIX [Suspect]
     Indication: FEELING COLD
     Dosage: ACCORDING TO DIRECTION NASAL
     Route: 045
     Dates: start: 20060101, end: 20060105
  2. ZYCAM NASAL SPAY  MATRIX [Suspect]
     Dosage: ACCORDING TO DIRECTION NASAL
     Route: 045

REACTIONS (2)
  - AGEUSIA [None]
  - ANOSMIA [None]
